FAERS Safety Report 16887282 (Version 1)
Quarter: 2019Q4

REPORT INFORMATION
  Report Type: Spontaneous
  Country: MX (occurrence: MX)
  Receive Date: 20191004
  Receipt Date: 20191004
  Transmission Date: 20200122
  Serious: Yes (Life-Threatening)
  Sender: FDA-Public Use
  Company Number: MX-JNJFOC-20191002008

PATIENT
  Age: 93 Year
  Sex: Male
  Weight: 48 kg

DRUGS (2)
  1. VIVITAR [Suspect]
     Active Substance: SPIRONOLACTONE
     Indication: CEREBROVASCULAR ACCIDENT
     Dosage: UNK
     Route: 065
  2. RIVAROXABAN [Suspect]
     Active Substance: RIVAROXABAN
     Indication: CEREBROVASCULAR ACCIDENT
     Dosage: 15 MG, QD
     Route: 048
     Dates: start: 20180719

REACTIONS (1)
  - Headache [Unknown]

NARRATIVE: CASE EVENT DATE: 201908
